FAERS Safety Report 20699919 (Version 19)
Quarter: 2025Q3

REPORT INFORMATION
  Report Type: Report from Study
  Country: US (occurrence: US)
  Receive Date: 20220412
  Receipt Date: 20250716
  Transmission Date: 20251020
  Serious: Yes (Hospitalization, Other)
  Sender: TAKEDA
  Company Number: US-TAKEDA-2021TUS055480

PATIENT
  Sex: Female
  Weight: 63 kg

DRUGS (16)
  1. HUMAN IMMUNOGLOBULIN G [Suspect]
     Active Substance: HUMAN IMMUNOGLOBULIN G
     Indication: Immunodeficiency common variable
     Dosage: 30 GRAM, Q4WEEKS
     Dates: start: 20060824
  2. HUMAN IMMUNOGLOBULIN G [Suspect]
     Active Substance: HUMAN IMMUNOGLOBULIN G
     Indication: Hypogammaglobulinaemia
     Dosage: 30 GRAM, Q4WEEKS
  3. DIPHENHYDRAMINE HYDROCHLORIDE [Concomitant]
     Active Substance: DIPHENHYDRAMINE HYDROCHLORIDE
  4. SODIUM CHLORIDE [Concomitant]
     Active Substance: SODIUM CHLORIDE
  5. EPINEPHRINE [Concomitant]
     Active Substance: EPINEPHRINE
  6. BALSALAZIDE DISODIUM [Concomitant]
     Active Substance: BALSALAZIDE DISODIUM
  7. PROTONIX [Concomitant]
     Active Substance: PANTOPRAZOLE SODIUM
  8. ACETAMINOPHEN [Concomitant]
     Active Substance: ACETAMINOPHEN
  9. CALCIUM CITRATE\CHOLECALCIFEROL [Concomitant]
     Active Substance: CALCIUM CITRATE\CHOLECALCIFEROL
  10. LOPERAMIDE [Concomitant]
     Active Substance: LOPERAMIDE
  11. SODIUM CHLORIDE [Concomitant]
     Active Substance: SODIUM CHLORIDE
  12. TYLENOL [Concomitant]
     Active Substance: ACETAMINOPHEN
  13. MAGNESIUM [Concomitant]
     Active Substance: MAGNESIUM
  14. TOPAMAX [Concomitant]
     Active Substance: TOPIRAMATE
  15. LOMOTIL [Concomitant]
     Active Substance: ATROPINE SULFATE\DIPHENOXYLATE HYDROCHLORIDE
  16. BUDESONIDE [Concomitant]
     Active Substance: BUDESONIDE

REACTIONS (23)
  - Colorectal cancer [Unknown]
  - Pneumonia [Recovered/Resolved]
  - Full blood count decreased [Unknown]
  - Colitis [Unknown]
  - Small intestinal obstruction [Unknown]
  - Enteritis infectious [Unknown]
  - Gastrointestinal carcinoma [Unknown]
  - Pain [Unknown]
  - Pyrexia [Unknown]
  - Tinnitus [Unknown]
  - Weight decreased [Not Recovered/Not Resolved]
  - Respiratory tract infection [Unknown]
  - Productive cough [Unknown]
  - Respiratory tract congestion [Unknown]
  - Product distribution issue [Unknown]
  - Food poisoning [Unknown]
  - Product use issue [Unknown]
  - Insurance issue [Unknown]
  - Wheezing [Unknown]
  - Paraesthesia [Unknown]
  - Vomiting [Unknown]
  - Fatigue [Unknown]
  - Nausea [Unknown]
